FAERS Safety Report 20910619 (Version 1)
Quarter: 2022Q2

REPORT INFORMATION
  Report Type: Spontaneous
  Country: CN (occurrence: None)
  Receive Date: 20220603
  Receipt Date: 20220603
  Transmission Date: 20220721
  Serious: Yes (Other)
  Sender: FDA-Public Use
  Company Number: CN-ROCHE-3104543

PATIENT
  Age: 27 Year
  Sex: Male
  Weight: 60 kg

DRUGS (18)
  1. ZOLEDRONIC ACID [Suspect]
     Active Substance: ZOLEDRONIC ACID
     Indication: Metastases to bone
     Route: 041
     Dates: start: 20200715, end: 20200715
  2. OXALIPLATIN [Suspect]
     Active Substance: OXALIPLATIN
     Indication: Rectal cancer
     Route: 041
     Dates: start: 20200715, end: 20200715
  3. IRINOTECAN HYDROCHLORIDE [Suspect]
     Active Substance: IRINOTECAN HYDROCHLORIDE
     Indication: Rectal cancer
     Route: 041
     Dates: start: 20200715, end: 20200715
  4. BEVACIZUMAB [Suspect]
     Active Substance: BEVACIZUMAB
     Indication: Rectal cancer
     Route: 041
     Dates: start: 20200715, end: 20200715
  5. CAPECITABINE [Concomitant]
     Active Substance: CAPECITABINE
     Indication: Rectal cancer
     Route: 048
     Dates: start: 20200714, end: 20200720
  6. DEXAMETHASONE SODIUM PHOSPHATE [Concomitant]
     Active Substance: DEXAMETHASONE SODIUM PHOSPHATE
     Route: 042
     Dates: start: 20200715, end: 20200715
  7. LACTOBACILLUS ACIDOPHILUS [Concomitant]
     Active Substance: LACTOBACILLUS ACIDOPHILUS
     Route: 048
     Dates: start: 20200714, end: 20200722
  8. UNSPECIFIED INGREDIENT [Concomitant]
     Active Substance: UNSPECIFIED INGREDIENT
     Route: 048
     Dates: start: 20200714, end: 20200722
  9. SODIUM CHLORIDE [Concomitant]
     Active Substance: SODIUM CHLORIDE
     Route: 041
     Dates: start: 20200715, end: 20200715
  10. SODIUM CHLORIDE [Concomitant]
     Active Substance: SODIUM CHLORIDE
     Route: 041
     Dates: start: 20200715, end: 20200715
  11. SODIUM CHLORIDE [Concomitant]
     Active Substance: SODIUM CHLORIDE
     Route: 041
     Dates: start: 20200715, end: 20200715
  12. SODIUM CHLORIDE [Concomitant]
     Active Substance: SODIUM CHLORIDE
     Route: 041
     Dates: start: 20200715, end: 20200715
  13. SODIUM CHLORIDE [Concomitant]
     Active Substance: SODIUM CHLORIDE
     Route: 041
     Dates: start: 20200715, end: 20200715
  14. PALONOSETRON HYDROCHLORIDE [Concomitant]
     Active Substance: PALONOSETRON HYDROCHLORIDE
     Route: 042
     Dates: start: 20200715, end: 20200715
  15. ONDANSETRON HYDROCHLORIDE [Concomitant]
     Active Substance: ONDANSETRON HYDROCHLORIDE
     Route: 048
     Dates: start: 20200714, end: 20200722
  16. TRAMADOL HYDROCHLORIDE [Concomitant]
     Active Substance: TRAMADOL HYDROCHLORIDE
     Indication: Analgesic therapy
     Route: 048
     Dates: start: 20200715, end: 20200722
  17. DEXTROSE [Concomitant]
     Active Substance: DEXTROSE
     Route: 042
     Dates: start: 20200715, end: 20200715
  18. HEPARIN [Concomitant]
     Active Substance: HEPARIN SODIUM
     Indication: Flushing
     Route: 065

REACTIONS (3)
  - Rash [Recovered/Resolved]
  - Pruritus [Recovered/Resolved]
  - Pyrexia [Recovered/Resolved]

NARRATIVE: CASE EVENT DATE: 20200715
